FAERS Safety Report 6024877-1 (Version None)
Quarter: 2008Q4

REPORT INFORMATION
  Report Type: 
  Country: None (occurrence: None)
  Receive Date: 20081231
  Receipt Date: 20081219
  Transmission Date: 20090506
  Serious: Yes (Other)
  Sender: FDA-Public Use
  Company Number: DE-PFIZER INC-2008157363

PATIENT

DRUGS (2)
  1. XALATAN [Suspect]
     Indication: NORMAL TENSION GLAUCOMA
     Dosage: UNK
     Dates: end: 20081121
  2. XENICAL [Concomitant]
     Dosage: UNK

REACTIONS (4)
  - BLOOD PRESSURE INCREASED [None]
  - HEADACHE [None]
  - MYALGIA [None]
  - NAUSEA [None]
